FAERS Safety Report 19519989 (Version 1)
Quarter: 2021Q3

REPORT INFORMATION
  Report Type: Spontaneous
  Country: US (occurrence: US)
  Receive Date: 20210712
  Receipt Date: 20210712
  Transmission Date: 20211014
  Serious: Yes (Death)
  Sender: FDA-Public Use
  Company Number: None

PATIENT
  Age: 83 Year
  Sex: Male

DRUGS (1)
  1. CASIRIVIMAB/IMDEVIMAB [Suspect]
     Active Substance: CASIRIVIMAB\IMDEVIMAB
     Indication: COVID-19
     Dosage: ?          OTHER FREQUENCY:ONCE;?
     Route: 040
     Dates: start: 20210611, end: 20210611

REACTIONS (8)
  - Bilevel positive airway pressure [None]
  - Cyanosis [None]
  - Palliative care [None]
  - Multiple organ dysfunction syndrome [None]
  - Chills [None]
  - Disease progression [None]
  - Intestinal perforation [None]
  - Tremor [None]

NARRATIVE: CASE EVENT DATE: 20210611
